FAERS Safety Report 9064469 (Version 4)
Quarter: 2013Q1

REPORT INFORMATION
  Report Type: Report from Study
  Country: US (occurrence: US)
  Receive Date: 20130130
  Receipt Date: 20130326
  Transmission Date: 20140127
  Serious: Yes (Hospitalization)
  Sender: FDA-Public Use
  Company Number: US-ACTELION-A-US2013-77493

PATIENT
  Age: 68 Year
  Sex: Female

DRUGS (7)
  1. VELETRI [Suspect]
     Indication: PULMONARY ARTERIAL HYPERTENSION
     Dosage: 20 NG/KG, UNK
     Route: 042
     Dates: start: 20130108
  2. VELETRI [Suspect]
     Dosage: 12 NG/KG, UNK
     Route: 042
     Dates: start: 20121115
  3. VELETRI [Suspect]
     Dosage: 8 NG/KG, PER MIN
     Route: 042
     Dates: start: 20130108
  4. VELETRI [Suspect]
     Dosage: 12 NG/KG, PER MIN
     Route: 042
     Dates: start: 20130108
  5. ADCIRCA [Concomitant]
  6. ASA [Concomitant]
  7. COUMADIN [Concomitant]

REACTIONS (14)
  - Nasopharyngitis [Unknown]
  - Headache [Unknown]
  - Nausea [Unknown]
  - Catheter site haemorrhage [Unknown]
  - Rhinorrhoea [Unknown]
  - Sneezing [Unknown]
  - Diarrhoea [Unknown]
  - Pain in jaw [Unknown]
  - Flushing [Unknown]
  - Vomiting [Unknown]
  - Bronchitis [Unknown]
  - Catheter site erythema [Unknown]
  - Dizziness [Unknown]
  - Pain [Unknown]
